FAERS Safety Report 9929178 (Version 4)
Quarter: 2014Q1

REPORT INFORMATION
  Report Type: Report from Study
  Country: US (occurrence: US)
  Receive Date: 20140227
  Receipt Date: 20140324
  Transmission Date: 20141002
  Serious: Yes (Death, Hospitalization, Other)
  Sender: FDA-Public Use
  Company Number: US-ACTELION-A-NJ2013-88449

PATIENT
  Age: 69 Year
  Sex: Female

DRUGS (3)
  1. VENTAVIS [Suspect]
     Indication: PULMONARY ARTERIAL HYPERTENSION
     Dosage: UNK
     Route: 055
     Dates: end: 20140213
  2. TRACLEER [Suspect]
     Indication: PULMONARY ARTERIAL HYPERTENSION
     Dosage: 125 MG, BID
     Route: 048
     Dates: end: 20140213
  3. ADCIRCA [Concomitant]

REACTIONS (6)
  - Death [Fatal]
  - Syncope [Unknown]
  - Fluid retention [Unknown]
  - Myocardial infarction [Unknown]
  - Oedema peripheral [Unknown]
  - Drug dose omission [Unknown]
